FAERS Safety Report 8847730 (Version 1)
Quarter: 2012Q4

REPORT INFORMATION
  Report Type: 
  Country: US (occurrence: US)
  Receive Date: 20121018
  Receipt Date: 20121018
  Transmission Date: 20130627
  Serious: Yes (Other)
  Sender: FDA-Public Use
  Company Number: US-PFIZER INC-2011295017

PATIENT
  Age: 73 Year
  Sex: Male
  Weight: 83.9 kg

DRUGS (12)
  1. LIPITOR [Suspect]
     Indication: BLOOD CHOLESTEROL INCREASED
     Dosage: 10 mg, 1x/day
     Route: 048
     Dates: start: 200503, end: 201110
  2. LIPITOR [Suspect]
     Indication: CORONARY ARTERY OCCLUSION
     Dosage: 40 mg, 1x/day
     Route: 048
     Dates: start: 200510, end: 201110
  3. LIPITOR [Suspect]
     Indication: BLOOD CHOLESTEROL INCREASED
     Dosage: UNK
     Route: 048
  4. LITHIUM ER [Concomitant]
     Indication: DEPRESSION
     Dosage: 450mg one and half tablet at morning and one tablet in evening
  5. LITHIUM ER [Concomitant]
     Dosage: 625 mg, 1x/day
     Dates: start: 1991
  6. BUPROPION HCL XL [Concomitant]
     Dosage: 450 mg, 1x/day in the morning
     Dates: start: 1991
  7. FLUOXETINE [Concomitant]
     Indication: DEPRESSION
     Dosage: 60 mg, 1x/day
     Dates: start: 1991
  8. FLUOXETINE [Concomitant]
     Dosage: UNK
  9. AMLODIPINE [Concomitant]
     Dosage: 5 mg, 1x/day at evening
  10. TAMSULOSIN [Concomitant]
     Dosage: 1.2 mg, 1x/day in evening
  11. ROPINIROLE [Concomitant]
     Dosage: 0.5 mg, 2 tablets at suppertime and 3 tablets at bedtime
  12. WELLBUTRIN [Concomitant]
     Indication: DEPRESSION
     Dosage: UNK

REACTIONS (8)
  - Back pain [Not Recovered/Not Resolved]
  - Dysstasia [Not Recovered/Not Resolved]
  - Balance disorder [Not Recovered/Not Resolved]
  - Spinal deformity [Not Recovered/Not Resolved]
  - Body height decreased [Not Recovered/Not Resolved]
  - Erectile dysfunction [Not Recovered/Not Resolved]
  - Fatigue [Not Recovered/Not Resolved]
  - Musculoskeletal discomfort [Unknown]
